FAERS Safety Report 26172160 (Version 1)
Quarter: 2025Q4

REPORT INFORMATION
  Report Type: Spontaneous
  Country: EU (occurrence: EU)
  Receive Date: 20251218
  Receipt Date: 20251218
  Transmission Date: 20260118
  Serious: Yes (Death)
  Sender: NOVARTIS
  Company Number: None

PATIENT
  Age: 66 Year
  Sex: Female
  Weight: 60 kg

DRUGS (1)
  1. COSENTYX [Suspect]
     Active Substance: SECUKINUMAB
     Indication: Psoriatic arthropathy
     Dosage: 150 MG, Q4W (EVERY 4 WEEKS)
     Route: 058
     Dates: start: 20211215, end: 20250604

REACTIONS (3)
  - Septic endocarditis [Fatal]
  - Pulmonary embolism [Fatal]
  - Hip fracture [Fatal]

NARRATIVE: CASE EVENT DATE: 20250720
